FAERS Safety Report 8904746 (Version 5)
Quarter: 2013Q3

REPORT INFORMATION
  Report Type: Report from Study
  Country: IT (occurrence: IT)
  Receive Date: 20121113
  Receipt Date: 20130919
  Transmission Date: 20140515
  Serious: Yes (Life-Threatening, Hospitalization)
  Sender: FDA-Public Use
  Company Number: IT-JNJFOC-20121104620

PATIENT
  Age: 79 Year
  Sex: Male
  Weight: 53 kg

DRUGS (15)
  1. ABIRATERONE ACETATE [Suspect]
     Indication: PROSTATE CANCER METASTATIC
     Route: 048
     Dates: start: 20121106, end: 20121107
  2. ABIRATERONE ACETATE [Interacting]
     Indication: PROSTATE CANCER METASTATIC
     Route: 048
     Dates: start: 20121019, end: 20121021
  3. ABIRATERONE ACETATE [Interacting]
     Indication: PROSTATE CANCER METASTATIC
     Route: 048
  4. PREDNISONE [Suspect]
     Indication: PROSTATE CANCER METASTATIC
     Route: 048
     Dates: start: 20121017
  5. REPAGLINIDE [Interacting]
     Indication: TYPE 2 DIABETES MELLITUS
     Route: 065
     Dates: start: 20120609, end: 20121025
  6. REPAGLINIDE [Interacting]
     Indication: TYPE 2 DIABETES MELLITUS
     Dosage: 0.5 MG, 1 MG AND 0.5 MG THREE TIMES DAILY
     Route: 065
     Dates: start: 20121026
  7. REPAGLINIDE [Interacting]
     Indication: TYPE 2 DIABETES MELLITUS
     Dosage: 0.5 MG, 1 MG AND 0.5 MG THREE TIMES DAILY
     Route: 065
     Dates: start: 20121026
  8. REPAGLINIDE [Interacting]
     Indication: TYPE 2 DIABETES MELLITUS
     Dosage: 1 MG, 2 MG AND 1 MG THREE TIMES DAILY
     Route: 065
     Dates: start: 20120609, end: 20121025
  9. ELIGARD [Concomitant]
     Indication: HORMONE THERAPY
     Route: 065
     Dates: start: 200603
  10. LANSOPRAZOLE [Concomitant]
     Route: 065
  11. FUROSEMIDE [Concomitant]
     Route: 065
  12. SIMVASTATIN [Concomitant]
     Route: 065
  13. NITROGLYCERIN [Concomitant]
     Route: 065
  14. ATENOLOL [Concomitant]
     Route: 065
  15. ALLOPURINOL [Concomitant]
     Route: 065

REACTIONS (2)
  - Hypoglycaemia [Recovered/Resolved]
  - Drug interaction [Recovered/Resolved]
